FAERS Safety Report 6418282-3 (Version None)
Quarter: 2009Q4

REPORT INFORMATION
  Report Type: 
  Country: None (occurrence: None)
  Receive Date: 20091021
  Receipt Date: 20090615
  Transmission Date: 20100525
  Serious: No
  Sender: FDA-Public Use
  Company Number: ALL1-2009-01647

PATIENT
  Age: 21 Year
  Sex: Male
  Weight: 72.6 kg

DRUGS (1)
  1. VYVANSE [Suspect]
     Indication: ATTENTION DEFICIT/HYPERACTIVITY DISORDER
     Dosage: 1X/DAY;QD, ORAL
     Route: 048
     Dates: end: 20090601

REACTIONS (3)
  - IMPAIRED WORK ABILITY [None]
  - MOVEMENT DISORDER [None]
  - WITHDRAWAL SYNDROME [None]
